FAERS Safety Report 26044549 (Version 1)
Quarter: 2025Q4

REPORT INFORMATION
  Report Type: Spontaneous
  Country: EU (occurrence: EU)
  Receive Date: 20251114
  Receipt Date: 20251114
  Transmission Date: 20260118
  Serious: Yes (Other)
  Sender: Kenvue
  Company Number: EU-KENVUE-20251103580

PATIENT

DRUGS (1)
  1. MENS ROGAINE [Suspect]
     Active Substance: MINOXIDIL
     Indication: Alopecia
     Route: 065

REACTIONS (7)
  - Nephrolithiasis [Unknown]
  - Product administered at inappropriate site [Unknown]
  - Product use in unapproved indication [Unknown]
  - Fluid retention [Unknown]
  - Yellow skin [Unknown]
  - Hair growth abnormal [Unknown]
  - Palpitations [Unknown]
